FAERS Safety Report 8291395-X (Version None)
Quarter: 2012Q2

REPORT INFORMATION
  Report Type: 
  Country: None (occurrence: None)
  Receive Date: 20120417
  Receipt Date: 20120411
  Transmission Date: 20120825
  Serious: Yes (Other)
  Sender: FDA-Public Use
  Company Number: JP-GLAXOSMITHKLINE-B0789946A

PATIENT
  Sex: Male

DRUGS (8)
  1. BROTIZOLAM [Concomitant]
     Dosage: .25MG PER DAY
     Route: 048
  2. FLUNITRAZEPAM [Concomitant]
     Dosage: 2MG PER DAY
     Route: 065
  3. PROMETHAZINE HCL [Concomitant]
     Dosage: 25MG PER DAY
     Route: 065
  4. LEVOTOMIN [Concomitant]
     Dosage: 5MG PER DAY
     Route: 065
  5. LITHIUM CARBONATE [Concomitant]
     Indication: BIPOLAR DISORDER
     Dosage: 400MG PER DAY
     Route: 048
  6. DEPAKENE [Concomitant]
     Indication: BIPOLAR DISORDER
     Dosage: 400MG PER DAY
     Route: 048
  7. LAMICTAL [Suspect]
     Indication: BIPOLAR DISORDER
     Dosage: 25MG TWICE PER DAY
     Route: 048
     Dates: start: 20120115, end: 20120301
  8. URINORM [Concomitant]
     Indication: HYPERURICAEMIA
     Dosage: 50MG PER DAY
     Route: 048

REACTIONS (8)
  - MUCOUS MEMBRANE DISORDER [None]
  - STEVENS-JOHNSON SYNDROME [None]
  - C-REACTIVE PROTEIN INCREASED [None]
  - DERMATITIS EXFOLIATIVE [None]
  - OCULAR HYPERAEMIA [None]
  - GENERALISED ERYTHEMA [None]
  - BLOOD CREATININE INCREASED [None]
  - BLOOD LACTATE DEHYDROGENASE INCREASED [None]
